FAERS Safety Report 9008380 (Version 1)
Quarter: 2012Q4

REPORT INFORMATION
  Report Type: Spontaneous
  Country: US (occurrence: None)
  Receive Date: 20121227
  Receipt Date: 20121227
  Transmission Date: 20130627
  Serious: Yes (Death, Hospitalization)
  Sender: FDA-Public Use
  Company Number: USA/USA/12/0027202

PATIENT
  Age: 78 Year
  Sex: Female

DRUGS (11)
  1. SUMATRIPTAN [Suspect]
     Indication: MIGRAINE HEADACHE
     Route: 048
  2. CYCLOSPORINE [Suspect]
  3. ALLOPURINOL(ALLOPURINOL) [Concomitant]
  4. PREDNISONE(PREDNISONE) [Concomitant]
  5. DILTIAZEM(DILTIAZEM) [Concomitant]
  6. ATENOLOL(ATENOLOL) [Concomitant]
  7. METHIMAZOLE(THIAMAZOLE) [Concomitant]
  8. RISEDRONATE(RISEDRONATE SODIUM) [Concomitant]
  9. TEMAZEPAM(TEMAZEPAM) [Concomitant]
  10. ALPRAZOLAM(ALPRAZOLAM) [Concomitant]
  11. FUROSEMIDE(FUROSEMIDE) [Concomitant]

REACTIONS (3)
  - Renal infarct [None]
  - Renal tubular necrosis [None]
  - Abdominal pain [None]
